FAERS Safety Report 7090160-9 (Version None)
Quarter: 2010Q4

REPORT INFORMATION
  Report Type: 
  Country: None (occurrence: None)
  Receive Date: 20101105
  Receipt Date: 20101105
  Transmission Date: 20110411
  Serious: No
  Sender: FDA-Public Use
  Company Number: None

PATIENT
  Age: 25 Year
  Sex: Female
  Weight: 54.4316 kg

DRUGS (2)
  1. TOPAMAX [Suspect]
     Indication: PARTIAL SEIZURES
     Dosage: 200MG TOPAMAX SID 047
     Route: 048
     Dates: start: 20100701, end: 20101010
  2. TOPAMAX [Suspect]
     Indication: POST-TRAUMATIC STRESS DISORDER
     Dosage: 200MG TOPAMAX SID 047
     Route: 048
     Dates: start: 20100701, end: 20101010

REACTIONS (2)
  - GLAUCOMA [None]
  - OPTIC NERVE DISORDER [None]
